FAERS Safety Report 13261131 (Version 2)
Quarter: 2017Q2

REPORT INFORMATION
  Report Type: Spontaneous
  Country: US (occurrence: US)
  Receive Date: 20170222
  Receipt Date: 20170404
  Transmission Date: 20170830
  Serious: Yes (Hospitalization, Other)
  Sender: FDA-Public Use
  Company Number: US-RARE DISEASE THERAPEUTICS, INC.-1063453

PATIENT
  Age: 17 Year
  Sex: Male
  Weight: 89.36 kg

DRUGS (11)
  1. CYSTADANE [Suspect]
     Active Substance: BETAINE
     Indication: VITAMIN B12 DEFICIENCY
     Dates: start: 20111116, end: 2013
  2. CYSTADANE [Suspect]
     Active Substance: BETAINE
     Dates: start: 20140729
  3. FOLIC ACID. [Concomitant]
     Active Substance: FOLIC ACID
  4. MVI (VITAMINS NOS) [Concomitant]
  5. ZYRTEC [Concomitant]
     Active Substance: CETIRIZINE HYDROCHLORIDE
  6. KEPPRA [Concomitant]
     Active Substance: LEVETIRACETAM
  7. BENZOYL PEROXIDE. [Concomitant]
     Active Substance: BENZOYL PEROXIDE
  8. FISH OIL [Concomitant]
     Active Substance: FISH OIL
  9. HYDROXOCOBALAMIN [Concomitant]
     Active Substance: HYDROXOCOBALAMIN
  10. PROPIMEX-1 [Concomitant]
  11. CYSTADANE [Suspect]
     Active Substance: BETAINE
     Dates: start: 2013, end: 20140728

REACTIONS (4)
  - Drug dispensing error [Unknown]
  - Hyperhomocysteinaemia [Unknown]
  - Treatment noncompliance [Unknown]
  - Dysgeusia [Unknown]

NARRATIVE: CASE EVENT DATE: 20170104
